FAERS Safety Report 6145154-4 (Version None)
Quarter: 2009Q2

REPORT INFORMATION
  Report Type: 
  Country: None (occurrence: None)
  Receive Date: 20090402
  Receipt Date: 20090127
  Transmission Date: 20091009
  Serious: No
  Sender: FDA-Public Use
  Company Number: 1000004194

PATIENT
  Age: 73 Year
  Sex: Female

DRUGS (5)
  1. BYSTOLIC [Suspect]
     Indication: BLOOD PRESSURE INCREASED
     Dosage: 2.5 MG (2.5 MG, 1 IN 1 D), ORAL : 5 MG (5 MG, 1 IN 1 D), ORAL : 10 MG (10 MG, 1 IN 1 D), ORAL
     Route: 048
     Dates: start: 20081101, end: 20080101
  2. BYSTOLIC [Suspect]
     Indication: BLOOD PRESSURE INCREASED
     Dosage: 2.5 MG (2.5 MG, 1 IN 1 D), ORAL : 5 MG (5 MG, 1 IN 1 D), ORAL : 10 MG (10 MG, 1 IN 1 D), ORAL
     Route: 048
     Dates: start: 20081101, end: 20081101
  3. BYSTOLIC [Suspect]
     Indication: BLOOD PRESSURE INCREASED
     Dosage: 2.5 MG (2.5 MG, 1 IN 1 D), ORAL : 5 MG (5 MG, 1 IN 1 D), ORAL : 10 MG (10 MG, 1 IN 1 D), ORAL
     Route: 048
     Dates: start: 20080101
  4. ALLOPURUINOL [Concomitant]
  5. TEKTURNA [Concomitant]

REACTIONS (3)
  - DRUG EFFECT DECREASED [None]
  - GOUT [None]
  - HYPERTENSION [None]
